FAERS Safety Report 4505574-8 (Version None)
Quarter: 2004Q4

REPORT INFORMATION
  Report Type: 
  Country: None (occurrence: None)
  Receive Date: 20041018
  Receipt Date: 20040716
  Transmission Date: 20050328
  Serious: No
  Sender: FDA-Public Use
  Company Number: 207919

PATIENT
  Age: 49 Year
  Sex: Female
  Weight: 97.5 kg

DRUGS (10)
  1. XOLAIR [Suspect]
     Indication: ASTHMA
     Dosage: 375 MG, Q2W, SUBCUTANEOUS
     Route: 058
     Dates: start: 20040401
  2. ZYRTEC [Concomitant]
  3. CARDIZEM [Concomitant]
  4. SINGULAIR [Concomitant]
  5. PREVACID [Concomitant]
  6. K-DUR 10 [Concomitant]
  7. FORADIL [Concomitant]
  8. FOSAMAX [Concomitant]
  9. DARVOCET [Concomitant]
  10. NEURONTIN [Concomitant]

REACTIONS (1)
  - MYALGIA [None]
